FAERS Safety Report 4404774-5 (Version None)
Quarter: 2004Q3

REPORT INFORMATION
  Report Type: 
  Country: None (occurrence: None)
  Receive Date: 20040720
  Receipt Date: 20030204
  Transmission Date: 20050211
  Serious: Yes (Hospitalization)
  Sender: FDA-Public Use
  Company Number: WAES 0212CAN00026

PATIENT
  Age: 14 Year
  Sex: Male

DRUGS (3)
  1. FOSAMAX [Suspect]
     Indication: OSTEOGENESIS IMPERFECTA
     Dosage: 70 MG/WKY
     Route: 048
     Dates: start: 20020213, end: 20030203
  2. FOSAMAX [Suspect]
     Indication: OSTEOGENESIS IMPERFECTA
     Dosage: 10 MG/DAILY
     Route: 048
     Dates: start: 20000315, end: 20020212
  3. VITAMIN D [Concomitant]

REACTIONS (8)
  - ACCIDENT [None]
  - ASEPTIC NECROSIS BONE [None]
  - FEMORAL NECK FRACTURE [None]
  - FRACTURE NONUNION [None]
  - GAIT DISTURBANCE [None]
  - HIP DEFORMITY [None]
  - IMPAIRED HEALING [None]
  - OSTEOARTHRITIS [None]
